FAERS Safety Report 9282457 (Version 4)
Quarter: 2013Q2

REPORT INFORMATION
  Report Type: Spontaneous
  Country: US (occurrence: US)
  Receive Date: 20130510
  Receipt Date: 20130628
  Transmission Date: 20140414
  Serious: Yes (Other)
  Sender: FDA-Public Use
  Company Number: US-PFIZER INC-2013143089

PATIENT
  Age: 56 Year
  Sex: Female
  Weight: 83.9 kg

DRUGS (17)
  1. LYRICA [Suspect]
     Indication: DIABETIC NEUROPATHY
     Dosage: 150 MG, 2X/DAY
     Route: 048
     Dates: start: 20130611
  2. LYRICA [Suspect]
     Indication: BACK PAIN
  3. LISINOPRIL [Concomitant]
     Indication: HYPERTENSION
     Dosage: 10 MG, 1X/DAY
     Route: 048
  4. SYNTHROID [Concomitant]
     Indication: THYROID DISORDER
     Dosage: 112 UG, 1X/DAY
     Route: 048
  5. ASPIRIN EC [Concomitant]
     Dosage: 81 MG, 1X/DAY
     Route: 048
  6. TRILIPIX [Concomitant]
     Dosage: 135 MG, 1X/DAY
     Route: 048
  7. CALCIUM 600 [Concomitant]
     Dosage: 1500 MG, 1X/DAY
     Route: 048
  8. FOLIC ACID [Concomitant]
     Dosage: 1 MG, 1X/DAY
     Route: 048
  9. LANTUS [Concomitant]
     Indication: DIABETIC NEUROPATHY
     Dosage: 60 IU AT BEDTIME 2 SOLUTION
  10. LANTUS [Concomitant]
     Indication: BLOOD GLUCOSE
     Dosage: 40 IU, 2X/DAY
  11. LANTUS [Concomitant]
     Dosage: 44 IU, 2X/DAY
     Dates: start: 20130610
  12. LORTAB [Concomitant]
     Dosage: 1 DF, 2X/DAY AS NEEDED (7.5-500MG TABLET )
     Route: 048
  13. NOVOLOG [Concomitant]
     Dosage: 18 IU, WITH MEALS
     Route: 058
  14. NOVOLOG [Concomitant]
     Dosage: 20 IU, WITH MEALS
     Dates: start: 20130610
  15. OMEGA 3 [Concomitant]
     Dosage: 1000 MG, 1X/DAY
     Route: 048
  16. VITAMIN B COMPLEX [Concomitant]
     Dosage: UNK, 1 DAILY
     Route: 048
  17. LEVOTHYROXINE SODIUM [Concomitant]
     Dosage: 112 UG, 1X/DAY

REACTIONS (2)
  - Glycosylated haemoglobin increased [Unknown]
  - Somnolence [Recovering/Resolving]
